FAERS Safety Report 5443805-0 (Version None)
Quarter: 2007Q3

REPORT INFORMATION
  Report Type: 
  Country: None (occurrence: None)
  Receive Date: 20070905
  Receipt Date: 20070824
  Transmission Date: 20080115
  Serious: No
  Sender: FDA-Public Use
  Company Number: AU-PFIZER INC-2007071265

PATIENT
  Age: 84 Year
  Sex: Male

DRUGS (9)
  1. LYRICA [Suspect]
     Indication: NEUROPATHY PERIPHERAL
     Route: 048
  2. SENNOSIDES [Concomitant]
  3. COLOXYL [Concomitant]
  4. IMDUR [Concomitant]
  5. TRITACE [Concomitant]
  6. CARTIA XT [Concomitant]
  7. VITAMIN CAP [Concomitant]
  8. KELP [Concomitant]
  9. FERROUS SULFATE TAB [Concomitant]

REACTIONS (5)
  - COLONIC POLYP [None]
  - DRUG INEFFECTIVE [None]
  - MEDICATION RESIDUE [None]
  - PAIN [None]
  - POLYP [None]
